FAERS Safety Report 19448810 (Version 2)
Quarter: 2021Q3

REPORT INFORMATION
  Report Type: Other
  Country: DE (occurrence: DE)
  Receive Date: 20210622
  Receipt Date: 20210706
  Transmission Date: 20211014
  Serious: No
  Sender: FDA-Public Use
  Company Number: DE-ROCHE-2852424

PATIENT
  Sex: Female
  Weight: 64 kg

DRUGS (1)
  1. OCRELIZUMAB. [Suspect]
     Active Substance: OCRELIZUMAB
     Indication: RELAPSING-REMITTING MULTIPLE SCLEROSIS
     Route: 065
     Dates: start: 20180906

REACTIONS (7)
  - Myalgia [Unknown]
  - Chills [Unknown]
  - Arthralgia [Unknown]
  - Anosmia [Unknown]
  - Pyrexia [Unknown]
  - Ageusia [Unknown]
  - Bone pain [Unknown]
